FAERS Safety Report 6432053-3 (Version None)
Quarter: 2009Q4

REPORT INFORMATION
  Report Type: 
  Country: None (occurrence: None)
  Receive Date: 20091109
  Receipt Date: 20091028
  Transmission Date: 20100525
  Serious: Yes (Hospitalization)
  Sender: FDA-Public Use
  Company Number: BR-BAYER-200923594LA

PATIENT
  Age: 16 Year
  Sex: Female
  Weight: 50 kg

DRUGS (2)
  1. AVELOX [Suspect]
     Indication: PHARYNGITIS
     Dosage: TOTAL DAILY DOSE: 400 MG  UNIT DOSE: 400 MG
     Route: 048
     Dates: start: 20091019, end: 20091020
  2. AVELOX [Suspect]
     Route: 042
     Dates: start: 20091021, end: 20091027

REACTIONS (7)
  - ABDOMINAL DISTENSION [None]
  - FLATULENCE [None]
  - PELVIC PAIN [None]
  - PERIPHERAL COLDNESS [None]
  - PYREXIA [None]
  - TREMOR [None]
  - VOMITING [None]
